FAERS Safety Report 24825669 (Version 2)
Quarter: 2025Q1

REPORT INFORMATION
  Report Type: Spontaneous
  Country: US (occurrence: US)
  Receive Date: 20250109
  Receipt Date: 20250205
  Transmission Date: 20250409
  Serious: No
  Sender: PFIZER
  Company Number: US-PFIZER INC-202500001320

PATIENT
  Age: 30 Year
  Sex: Female

DRUGS (5)
  1. LORAZEPAM [Suspect]
     Active Substance: LORAZEPAM
     Indication: Nausea
     Route: 048
     Dates: start: 20240409, end: 202410
  2. PEPCID [Suspect]
     Active Substance: FAMOTIDINE
     Indication: Nausea
     Route: 042
     Dates: start: 202409, end: 202410
  3. OLANZAPINE [Suspect]
     Active Substance: OLANZAPINE
     Indication: Nausea
     Dosage: 5 MG, 1X/DAY
     Route: 048
     Dates: start: 202409, end: 202412
  4. PROCHLORPERAZINE [Suspect]
     Active Substance: PROCHLORPERAZINE
     Indication: Nausea
     Route: 048
     Dates: start: 202409, end: 202410
  5. BRENTUXIMAB [Concomitant]
     Active Substance: BRENTUXIMAB

REACTIONS (1)
  - Drug ineffective [Unknown]

NARRATIVE: CASE EVENT DATE: 20240101
